FAERS Safety Report 5527713-2 (Version None)
Quarter: 2007Q4

REPORT INFORMATION
  Report Type: 
  Country: None (occurrence: None)
  Receive Date: 20071121
  Receipt Date: 20071107
  Transmission Date: 20080405
  Serious: Yes (Hospitalization)
  Sender: FDA-Public Use
  Company Number: 2007S1000282

PATIENT
  Age: 48 Year
  Sex: Female
  Weight: 63.0046 kg

DRUGS (1)
  1. ACITRETIN [Suspect]
     Indication: PITYRIASIS
     Dosage: PO
     Route: 048
     Dates: start: 20070815, end: 20071014

REACTIONS (3)
  - ASTHENIA [None]
  - HEPATITIS [None]
  - MYOPATHY [None]
